FAERS Safety Report 17204677 (Version 4)
Quarter: 2020Q3

REPORT INFORMATION
  Report Type: Spontaneous
  Country: US (occurrence: US)
  Receive Date: 20191226
  Receipt Date: 20200921
  Transmission Date: 20201102
  Serious: No
  Sender: FDA-Public Use
  Company Number: US-INCYTE CORPORATION-2019IN012781

PATIENT

DRUGS (4)
  1. JAKAFI [Suspect]
     Active Substance: RUXOLITINIB
     Dosage: 20 MILLIGRAM, BID
     Route: 048
     Dates: start: 201911
  2. JAKAFI [Suspect]
     Active Substance: RUXOLITINIB
     Indication: ESSENTIAL THROMBOCYTHAEMIA
     Dosage: 10 MILLIGRAM, BID
     Route: 048
     Dates: start: 20191120
  3. JAKAFI [Suspect]
     Active Substance: RUXOLITINIB
     Dosage: 20 MG QAM AND 10 MG QPM
     Route: 048
     Dates: start: 20191120
  4. JAKAFI [Suspect]
     Active Substance: RUXOLITINIB
     Dosage: 20 MILLIGRAM, BID
     Route: 048
     Dates: start: 20191120

REACTIONS (8)
  - Dysphonia [Unknown]
  - Platelet count abnormal [Unknown]
  - Off label use [Unknown]
  - Bone pain [Unknown]
  - Muscle spasms [Unknown]
  - Diarrhoea [Unknown]
  - Headache [Unknown]
  - Dry mouth [Unknown]

NARRATIVE: CASE EVENT DATE: 201911
